FAERS Safety Report 17204428 (Version 4)
Quarter: 2020Q3

REPORT INFORMATION
  Report Type: Spontaneous
  Country: US (occurrence: US)
  Receive Date: 20191226
  Receipt Date: 20200820
  Transmission Date: 20201102
  Serious: Yes (Hospitalization)
  Sender: FDA-Public Use
  Company Number: US-ACTELION-A-US2019-199756

PATIENT
  Sex: Female
  Weight: 55.33 kg

DRUGS (3)
  1. UPTRAVI [Suspect]
     Active Substance: SELEXIPAG
     Dosage: UNK
     Route: 048
  2. UPTRAVI [Suspect]
     Active Substance: SELEXIPAG
     Indication: PULMONARY ARTERIAL HYPERTENSION
     Dosage: 800 MCG, BID
     Route: 048
  3. OPSUMIT [Suspect]
     Active Substance: MACITENTAN
     Indication: PULMONARY ARTERIAL HYPERTENSION
     Dosage: 10 MG, QD
     Route: 048

REACTIONS (8)
  - Somnolence [Unknown]
  - Confusional state [Unknown]
  - Vomiting [Recovered/Resolved]
  - Dyspnoea [Unknown]
  - Dyspnoea exertional [Unknown]
  - Product dose omission issue [Unknown]
  - Oxygen saturation decreased [Unknown]
  - Illness [Recovered/Resolved]
